FAERS Safety Report 17184662 (Version 1)
Quarter: 2019Q4

REPORT INFORMATION
  Report Type: Report from Study
  Country: KR (occurrence: KR)
  Receive Date: 20191220
  Receipt Date: 20191220
  Transmission Date: 20200122
  Serious: Yes (Life-Threatening)
  Sender: FDA-Public Use
  Company Number: KR-GLAXOSMITHKLINE-KP2019TSO219524

PATIENT
  Age: 74 Year
  Sex: Male

DRUGS (12)
  1. HARTMANDEX (CALCIUM CHLORIDE + DEXTROSE + POTASSIUM CHLORIDE + SODIUM [Concomitant]
     Indication: PRODUCT USED FOR UNKNOWN INDICATION
     Dosage: 500 ML
     Route: 042
     Dates: start: 20191125, end: 20191125
  2. DUPHALAC EASY [Concomitant]
     Indication: CONSTIPATION
     Dosage: 15 MG AS NEEDED
     Route: 048
  3. RED BLOOD CELLS [Concomitant]
     Active Substance: HUMAN RED BLOOD CELL
     Indication: ANAEMIA
     Dosage: 2 OTHER UNITS
     Route: 042
     Dates: start: 20191128, end: 20191128
  4. PYRIDOXINE [Concomitant]
     Active Substance: PYRIDOXINE
     Dosage: 50 MG, 1 IN 1 DAY
     Route: 048
     Dates: start: 20191205
  5. ASPIRIN. [Concomitant]
     Active Substance: ASPIRIN
     Indication: ATRIAL FIBRILLATION
     Dosage: 28 DAYS
     Route: 048
  6. PENIRAMIN [Concomitant]
     Dosage: 2 MG, OTHER
     Route: 042
     Dates: start: 20191128, end: 20191128
  7. FOLIC ACID. [Concomitant]
     Active Substance: FOLIC ACID
     Indication: ANAEMIA
     Dosage: 1 MG, 1DAY
     Route: 048
     Dates: start: 20191205
  8. PLAVIX [Concomitant]
     Active Substance: CLOPIDOGREL BISULFATE
     Indication: ATRIAL FIBRILLATION
     Dosage: 2 MONTHS
     Route: 048
  9. PENIRAMIN [Concomitant]
     Indication: PRODUCT USED FOR UNKNOWN INDICATION
     Dosage: 2 MG
     Route: 042
     Dates: start: 20191125, end: 20191125
  10. NIRAPARIB [Suspect]
     Active Substance: NIRAPARIB
     Indication: TRANSITIONAL CELL CARCINOMA
     Dosage: DATE OF MOST RECENT DOSE OF NIRAPARIB: 24/NOV/2019 (200 MG,1 IN 1 D
     Route: 048
     Dates: start: 20191017
  11. ATEZOLIZUMAB. [Suspect]
     Active Substance: ATEZOLIZUMAB
     Indication: TRANSITIONAL CELL CARCINOMA
     Dosage: DATE OF MOST  RECENT DOSE OF ATEZOLIZUMAB: 06/NOV/2019 (1200 MG,1 IN 3 WK
     Route: 042
     Dates: start: 20191017
  12. PENIRAMIN [Concomitant]
     Dosage: 2 MG, OTHER
     Route: 042
     Dates: start: 20191202, end: 20191202

REACTIONS (1)
  - Platelet count decreased [Recovered/Resolved]

NARRATIVE: CASE EVENT DATE: 20191125
